FAERS Safety Report 9789470 (Version 3)
Quarter: 2014Q1

REPORT INFORMATION
  Report Type: Spontaneous
  Country: US (occurrence: US)
  Receive Date: 20131231
  Receipt Date: 20140225
  Transmission Date: 20141002
  Serious: Yes (Death, Hospitalization)
  Sender: FDA-Public Use
  Company Number: US-BIOGENIDEC-2013BI123612

PATIENT
  Age: 69 Year
  Sex: Female

DRUGS (30)
  1. TYSABRI [Suspect]
     Indication: MULTIPLE SCLEROSIS
     Route: 042
     Dates: start: 20060818, end: 20081015
  2. TYSABRI [Suspect]
     Indication: MULTIPLE SCLEROSIS
     Route: 042
     Dates: start: 20090320, end: 20131111
  3. BACLOFEN [Concomitant]
     Route: 048
     Dates: start: 20120110
  4. BACLOFEN [Concomitant]
     Route: 048
     Dates: start: 20120110
  5. LYRICA [Concomitant]
     Dates: start: 20110321
  6. LYRICA [Concomitant]
     Dates: start: 20110321
  7. WARFARIN [Concomitant]
     Dates: start: 20110321
  8. WARFARIN [Concomitant]
     Dates: start: 20110321
  9. PREMARIN [Concomitant]
     Dates: start: 20110321
  10. LORTAB [Concomitant]
     Dates: start: 20111214
  11. OMEGA-3 FISH OIL [Concomitant]
     Dates: start: 20110321
  12. OMEGA 6 FISH OIL [Concomitant]
     Dates: start: 20110321
  13. VITAMIN E [Concomitant]
     Route: 048
     Dates: start: 20110321
  14. ERGOCALCIFEROL [Concomitant]
     Route: 048
     Dates: start: 20110321
  15. CYMBALTA [Concomitant]
     Route: 048
     Dates: start: 20110321
  16. BENICAR [Concomitant]
     Route: 048
     Dates: start: 20110321
  17. SANCTURA XR [Concomitant]
     Route: 048
     Dates: start: 20110321
  18. CELEBREX [Concomitant]
     Route: 048
     Dates: start: 20110321
  19. DOCUSATE [Concomitant]
     Route: 048
     Dates: start: 20110321
  20. ADRENAL [Concomitant]
     Route: 048
     Dates: start: 20110321
  21. NIACIN FLUSH FREE [Concomitant]
     Route: 048
     Dates: start: 20110321
  22. VITAMIN B12 [Concomitant]
     Route: 048
     Dates: start: 20110321
  23. VITAMIN B12 [Concomitant]
     Route: 048
     Dates: start: 20110321
  24. PANTOTHENIC ACID [Concomitant]
     Route: 048
     Dates: start: 20110321
  25. GINKOBA [Concomitant]
     Route: 048
     Dates: start: 20110321
  26. GRAPE SEED EXTRA [Concomitant]
     Route: 048
     Dates: start: 20110321
  27. PINE BARK COMPLEX [Concomitant]
     Route: 048
     Dates: start: 20110321
  28. GREEN TEA [Concomitant]
     Route: 048
     Dates: start: 20110321
  29. ALBUTEROL [Concomitant]
  30. TRAZODONE [Concomitant]
     Route: 048
     Dates: start: 20131008

REACTIONS (10)
  - Failure to thrive [Fatal]
  - Urosepsis [Fatal]
  - Pneumonia [Not Recovered/Not Resolved]
  - Urinary tract infection [Not Recovered/Not Resolved]
  - Infection [Not Recovered/Not Resolved]
  - Dysphagia [Not Recovered/Not Resolved]
  - Mastication disorder [Not Recovered/Not Resolved]
  - Multiple sclerosis [Not Recovered/Not Resolved]
  - Lethargy [Recovered/Resolved]
  - Depressed level of consciousness [Not Recovered/Not Resolved]
